FAERS Safety Report 19450654 (Version 1)
Quarter: 2021Q2

REPORT INFORMATION
  Report Type: Report from Study
  Country: None (occurrence: US)
  Receive Date: 20210622
  Receipt Date: 20210622
  Transmission Date: 20210717
  Serious: Yes (Death, Hospitalization)
  Sender: FDA-Public Use
  Company Number: US-ABBVIE-21K-163-3871323-00

PATIENT
  Sex: Female

DRUGS (1)
  1. HUMIRA [Suspect]
     Active Substance: ADALIMUMAB
     Indication: CROHN^S DISEASE
     Route: 058

REACTIONS (7)
  - Crohn^s disease [Fatal]
  - Cardiac failure congestive [Fatal]
  - Hospitalisation [Unknown]
  - Product use issue [Fatal]
  - Pancreatitis [Fatal]
  - Cholelithiasis [Fatal]
  - Chronic kidney disease [Fatal]
